FAERS Safety Report 25846012 (Version 1)
Quarter: 2025Q3

REPORT INFORMATION
  Report Type: Spontaneous
  Country: EU (occurrence: EU)
  Receive Date: 20250925
  Receipt Date: 20250925
  Transmission Date: 20251021
  Serious: Yes (Other)
  Sender: ALEXION PHARMACEUTICALS
  Company Number: EU-AstraZeneca-CH-00953871AM

PATIENT
  Age: 43 Year
  Sex: Female

DRUGS (1)
  1. LYNPARZA [Suspect]
     Active Substance: OLAPARIB
     Dates: start: 2024, end: 202509

REACTIONS (5)
  - Disease progression [Unknown]
  - Dizziness [Unknown]
  - Nausea [Unknown]
  - Pain [Unknown]
  - Off label use [Unknown]
